FAERS Safety Report 20974416 (Version 2)
Quarter: 2022Q3

REPORT INFORMATION
  Report Type: Report from Study
  Country: CH (occurrence: CH)
  Receive Date: 20220617
  Receipt Date: 20220705
  Transmission Date: 20221026
  Serious: Yes (Other)
  Sender: FDA-Public Use
  Company Number: CH-ABBVIE-21K-151-4157076-00

PATIENT
  Sex: Male

DRUGS (3)
  1. CARBIDOPA\LEVODOPA [Suspect]
     Active Substance: CARBIDOPA\LEVODOPA
     Indication: Parkinson^s disease
     Route: 050
     Dates: start: 20171115
  2. CARBIDOPA\LEVODOPA [Suspect]
     Active Substance: CARBIDOPA\LEVODOPA
     Dosage: MD: 4.3 ML, CRD: 4.2 ML/H, CRN: 2.2 ML/H, ED: 1.0 ML, 24 HOURS THERAPY
     Route: 050
     Dates: start: 20210702, end: 20211103
  3. CARBIDOPA\LEVODOPA [Suspect]
     Active Substance: CARBIDOPA\LEVODOPA
     Dosage: MD: 4.3 ML, CRD: 4.2 ML/H, CRN: 2.2 ML/H, ED: 1.0 ML, 24H THERAPY
     Route: 050
     Dates: start: 20211103

REACTIONS (8)
  - Knee operation [Recovered/Resolved]
  - Arthropathy [Unknown]
  - Mobility decreased [Not Recovered/Not Resolved]
  - Device leakage [Unknown]
  - Weight decreased [Not Recovered/Not Resolved]
  - Gait disturbance [Unknown]
  - Dyskinesia [Not Recovered/Not Resolved]
  - Hallucination [Unknown]
